FAERS Safety Report 15124744 (Version 1)
Quarter: 2018Q3

REPORT INFORMATION
  Report Type: Other
  Country: CA (occurrence: CA)
  Receive Date: 20180710
  Receipt Date: 20180710
  Transmission Date: 20181010
  Serious: Yes (Other)
  Sender: FDA-Public Use
  Company Number: CA-APOTEX-2018AP016584

PATIENT
  Age: 81 Year
  Sex: Female
  Weight: 78 kg

DRUGS (1)
  1. PANTOPRAZOLE [Suspect]
     Active Substance: PANTOPRAZOLE
     Indication: GASTROOESOPHAGEAL REFLUX DISEASE
     Dosage: 40 MG, QD
     Route: 048

REACTIONS (3)
  - Dysphagia [Recovering/Resolving]
  - Interventional procedure [Recovering/Resolving]
  - Dyspepsia [Recovering/Resolving]
